FAERS Safety Report 4301649-7 (Version None)
Quarter: 2004Q1

REPORT INFORMATION
  Report Type: 
  Country: None (occurrence: None)
  Receive Date: 20040223
  Receipt Date: 20040213
  Transmission Date: 20041129
  Serious: Yes (Congenital Anomaly)
  Sender: FDA-Public Use
  Company Number: 200412203GDDC

PATIENT
  Sex: 0

DRUGS (1)
  1. CLOMID [Suspect]
     Indication: INFERTILITY
     Dosage: DOSE: UNK
     Route: 048

REACTIONS (3)
  - CONGENITAL VITREOUS ANOMALY [None]
  - MATERNAL DRUGS AFFECTING FOETUS [None]
  - MICROPHTHALMOS [None]
